FAERS Safety Report 8939485 (Version 1)
Quarter: 2012Q4

REPORT INFORMATION
  Report Type: Report from Study
  Country: GB (occurrence: GB)
  Receive Date: 20121203
  Receipt Date: 20121203
  Transmission Date: 20130627
  Serious: Yes (Other)
  Sender: FDA-Public Use
  Company Number: GB-BRISTOL-MYERS SQUIBB COMPANY-17156647

PATIENT
  Age: 41 Year
  Sex: Male

DRUGS (1)
  1. IPILIMUMAB [Suspect]
     Dosage: maintenance dose: Nov-2010

REACTIONS (4)
  - Hypothalamo-pituitary disorder [Unknown]
  - Fatigue [Unknown]
  - Blood testosterone decreased [Unknown]
  - Blood gonadotrophin decreased [Unknown]
